FAERS Safety Report 25499799 (Version 1)
Quarter: 2025Q2

REPORT INFORMATION
  Report Type: Spontaneous
  Country: US (occurrence: None)
  Receive Date: 20250630
  Receipt Date: 20250630
  Transmission Date: 20250717
  Serious: Yes (Disabling)
  Sender: FDA-CTU
  Company Number: None

PATIENT
  Age: 68 Year
  Sex: Female
  Weight: 65.25 kg

DRUGS (6)
  1. CIPROFLOXACIN HYDROCHLORIDE [Suspect]
     Active Substance: CIPROFLOXACIN HYDROCHLORIDE
     Indication: Urinary tract infection
     Dosage: OTHER QUANTITY : 14 TABLET(S);?FREQUENCY : EVERY 12 HOURS;?
     Route: 048
     Dates: start: 20250610, end: 20250616
  2. Leuvothyroxine [Concomitant]
  3. YUSIMRY [Concomitant]
     Active Substance: ADALIMUMAB-AQVH
  4. VITAMIN D [Concomitant]
     Active Substance: VITAMIN D NOS
  5. MAGNESIUM [Concomitant]
     Active Substance: MAGNESIUM
  6. ELECTROLYTES NOS [Concomitant]
     Active Substance: ELECTROLYTES NOS

REACTIONS (6)
  - Pain [None]
  - Gait disturbance [None]
  - Musculoskeletal stiffness [None]
  - Mobility decreased [None]
  - Sitting disability [None]
  - Asthenia [None]

NARRATIVE: CASE EVENT DATE: 20250610
